FAERS Safety Report 12204493 (Version 2)
Quarter: 2020Q2

REPORT INFORMATION
  Report Type: Report from Study
  Country: AU (occurrence: AU)
  Receive Date: 20160323
  Receipt Date: 20200515
  Transmission Date: 20200713
  Serious: Yes (Other)
  Sender: FDA-Public Use
  Company Number: AU-JNJFOC-20160320018

PATIENT
  Age: 8 Decade
  Sex: Male

DRUGS (1)
  1. STELARA [Suspect]
     Active Substance: USTEKINUMAB
     Indication: PSORIASIS
     Route: 058
     Dates: start: 20160119

REACTIONS (4)
  - Osteomyelitis [Unknown]
  - Cardiac pacemaker insertion [Unknown]
  - Cardiovascular disorder [Unknown]
  - Toe amputation [Unknown]

NARRATIVE: CASE EVENT DATE: 201603
